FAERS Safety Report 6694480-9 (Version None)
Quarter: 2010Q2

REPORT INFORMATION
  Report Type: 
  Country: None (occurrence: None)
  Receive Date: 20100420
  Receipt Date: 20100405
  Transmission Date: 20101027
  Serious: Yes (Other)
  Sender: FDA-Public Use
  Company Number: AUR-APL-2010-00984

PATIENT
  Age: 23 Year
  Sex: Female

DRUGS (1)
  1. FLUOXETINE [Suspect]
     Indication: ANXIETY
     Dosage: 20 MG, DAILY, ORAL
     Route: 048

REACTIONS (1)
  - SUNBURN [None]
